FAERS Safety Report 10172870 (Version 2)
Quarter: 2014Q2

REPORT INFORMATION
  Report Type: Spontaneous
  Country: JP (occurrence: JP)
  Receive Date: 20140515
  Receipt Date: 20140528
  Transmission Date: 20141212
  Serious: Yes (Hospitalization)
  Sender: FDA-Public Use
  Company Number: JP-EISAI INC-E7389-05056-SPO-JP

PATIENT
  Age: 7 Decade
  Sex: Female

DRUGS (3)
  1. HALAVEN [Suspect]
     Indication: BREAST CANCER RECURRENT
     Dosage: 1.4 MG/M2
     Route: 041
     Dates: start: 20140220, end: 20140513
  2. PERJETA [Suspect]
     Indication: BREAST CANCER RECURRENT
     Dosage: 840 MG
     Route: 065
     Dates: start: 20140220
  3. HERCEPTIN [Suspect]
     Indication: BREAST CANCER RECURRENT
     Dosage: 8 MG/KG
     Route: 065
     Dates: start: 20140220

REACTIONS (1)
  - Abscess [Recovered/Resolved]
